FAERS Safety Report 5169379-X (Version None)
Quarter: 2006Q4

REPORT INFORMATION
  Report Type: 
  Country: None (occurrence: None)
  Receive Date: 20061201
  Receipt Date: 20061127
  Transmission Date: 20070319
  Serious: Yes (Hospitalization, Other)
  Sender: FDA-Public Use
  Company Number: US-2006-026155

PATIENT
  Age: 81 Year
  Sex: Male

DRUGS (3)
  1. CAMPATH [Suspect]
     Indication: CHRONIC LYMPHOCYTIC LEUKAEMIA
     Dosage: 30 MG, 2X/WEEK, SUBCUTANEOUS
     Route: 058
     Dates: start: 20060303, end: 20060301
  2. CAMPATH [Suspect]
     Indication: CHRONIC LYMPHOCYTIC LEUKAEMIA
     Dosage: 30 MG, 2X/WEEK, SUBCUTANEOUS
     Route: 058
     Dates: start: 20060328, end: 20060418
  3. CAMPATH [Suspect]
     Indication: CHRONIC LYMPHOCYTIC LEUKAEMIA
     Dosage: 30 MG, 2X/WEEK, SUBCUTANEOUS
     Route: 058
     Dates: end: 20060801

REACTIONS (5)
  - ASPIRATION [None]
  - BACK PAIN [None]
  - BODY TEMPERATURE INCREASED [None]
  - DEMYELINATING POLYNEUROPATHY [None]
  - DYSPNOEA [None]
